FAERS Safety Report 9499491 (Version 1)
Quarter: 2013Q3

REPORT INFORMATION
  Report Type: Spontaneous
  Country: HK (occurrence: None)
  Receive Date: 20130903
  Receipt Date: 20130903
  Transmission Date: 20140515
  Serious: Yes (Hospitalization, Other)
  Sender: FDA-Public Use
  Company Number: SYM-2013-09589

PATIENT
  Age: 30 Year
  Sex: Female

DRUGS (3)
  1. NIFEDIPINE (NIFEDIPINE) (NIFEDIPINE) [Suspect]
     Dosage: 10 MG, EVERY 15 MIN FOR 4 DOSES
     Route: 060
  2. DEXAMETHASONE (DEXAMETHASONE) (INJECTION) (DEXAMETHASONE) [Suspect]
     Dosage: 6  MG, EVERY 6 H FOR 4 DOSES
     Route: 030
  3. ATOSIBAN (ATOSIBAN) (ATOSIBAN) [Suspect]
     Dosage: 6.75 MG OVER 1 MIN, IV
     Route: 040

REACTIONS (4)
  - Atrial fibrillation [None]
  - Palpitations [None]
  - Chest discomfort [None]
  - Exposure during pregnancy [None]
